FAERS Safety Report 7164572-9 (Version None)
Quarter: 2010Q4

REPORT INFORMATION
  Report Type: 
  Country: None (occurrence: None)
  Receive Date: 20101123
  Receipt Date: 20100723
  Transmission Date: 20110411
  Serious: No
  Sender: FDA-Public Use
  Company Number: 016256

PATIENT
  Sex: Male
  Weight: 68 kg

DRUGS (3)
  1. CIMZIA [Suspect]
     Indication: CROHN'S DISEASE
     Dosage: SUBCUTANEOUS
     Route: 058
  2. ADVAIR [Concomitant]
  3. BENADRYL [Concomitant]

REACTIONS (5)
  - HEADACHE [None]
  - PYREXIA [None]
  - RHINORRHOEA [None]
  - SINUS HEADACHE [None]
  - SNEEZING [None]
